FAERS Safety Report 16772296 (Version 1)
Quarter: 2019Q3

REPORT INFORMATION
  Report Type: Spontaneous
  Country: US (occurrence: US)
  Receive Date: 20190904
  Receipt Date: 20190904
  Transmission Date: 20191005
  Serious: No
  Sender: FDA-Public Use
  Company Number: US-ABBVIE-19K-163-2907049-00

PATIENT
  Sex: Female

DRUGS (1)
  1. ORILISSA [Suspect]
     Active Substance: ELAGOLIX SODIUM
     Indication: ENDOMETRIOSIS
     Route: 048
     Dates: end: 2019

REACTIONS (7)
  - Arthralgia [Unknown]
  - Menstrual disorder [Unknown]
  - Feeling cold [Unknown]
  - Feeling cold [Unknown]
  - Nausea [Unknown]
  - Hepatic enzyme increased [Unknown]
  - Hot flush [Unknown]

NARRATIVE: CASE EVENT DATE: 2019
